FAERS Safety Report 4492863-9 (Version None)
Quarter: 2004Q4

REPORT INFORMATION
  Report Type: 
  Country: None (occurrence: None)
  Receive Date: 20041102
  Receipt Date: 20041102
  Transmission Date: 20050328
  Serious: Yes (Hospitalization)
  Sender: FDA-Public Use
  Company Number: None

PATIENT
  Age: 50 Year
  Sex: Male
  Weight: 68.9467 kg

DRUGS (1)
  1. MS CONTIN [Suspect]
     Indication: PAIN MANAGEMENT
     Dosage: 90MG Q8H ORAL
     Route: 048
     Dates: start: 20040429, end: 20040522

REACTIONS (8)
  - AGITATION [None]
  - AUTONOMIC NERVOUS SYSTEM IMBALANCE [None]
  - CONDITION AGGRAVATED [None]
  - DRUG WITHDRAWAL SYNDROME [None]
  - DYSKINESIA [None]
  - PAIN [None]
  - RESTLESSNESS [None]
  - TREATMENT NONCOMPLIANCE [None]
